FAERS Safety Report 20923392 (Version 1)
Quarter: 2022Q2

REPORT INFORMATION
  Report Type: Spontaneous
  Country: GB (occurrence: GB)
  Receive Date: 20220607
  Receipt Date: 20220607
  Transmission Date: 20220721
  Serious: Yes (Hospitalization)
  Sender: FDA-Public Use
  Company Number: None

PATIENT
  Sex: Female

DRUGS (24)
  1. ATEZOLIZUMAB [Suspect]
     Active Substance: ATEZOLIZUMAB
     Indication: Product used for unknown indication
     Route: 065
  2. AMITRIPTYLINE [Concomitant]
     Active Substance: AMITRIPTYLINE
  3. ATORVASTATIN [Concomitant]
     Active Substance: ATORVASTATIN
  4. BACLOFEN [Concomitant]
     Active Substance: BACLOFEN
  5. FORMOTEROL [Concomitant]
     Active Substance: FORMOTEROL
  6. BECLOMETHASONE DIPROPIONATE [Concomitant]
     Active Substance: BECLOMETHASONE DIPROPIONATE
  7. BISOPROLOL [Concomitant]
     Active Substance: BISOPROLOL
  8. CARBOCYSTEINE [Concomitant]
     Active Substance: CARBOCYSTEINE
     Dosage: 375MG CAPSULES TWO TO BE TAKEN THREE TIMES A DAY
  9. DIAZEPAM [Concomitant]
     Active Substance: DIAZEPAM
  10. DOCUSATE [Concomitant]
     Active Substance: DOCUSATE
     Dosage: 100MG CAPSULES TWO TO BE TAKEN AT NIGHT
  11. DOMPERIDONE [Concomitant]
     Active Substance: DOMPERIDONE
     Dosage: 10MG TABLETS ONE TO BE TAKEN UP TO THREE TIMES A DAY. MAXIMUM 3 IN 24 HOURS
  12. GABAPENTIN [Concomitant]
     Active Substance: GABAPENTIN
     Dosage: 300MG CAPSULES TWO TO BE TAKEN AT 9AM, THREE TO BE TAKEN AT 5PM AND TWO TO BE TAKEN AT 9PM.
  13. NITROGLYCERIN [Concomitant]
     Active Substance: NITROGLYCERIN
  14. INSULIN ASPART [Concomitant]
     Active Substance: INSULIN ASPART
  15. INSULIN GLARGINE [Concomitant]
     Active Substance: INSULIN GLARGINE
  16. POLYETHYLENE GLYCOLS [Concomitant]
     Active Substance: POLYETHYLENE GLYCOLS
  17. MEBEVERINE [Concomitant]
     Active Substance: MEBEVERINE
     Dosage: 200MG MODIFIED-RELEASE CAPSULES TAKE ONE CAPSULE TWICE A DAY
  18. MIRTAZAPINE [Concomitant]
     Active Substance: MIRTAZAPINE
     Dosage: 45MG TABLETS ONE TO BE TAKEN AT NIGHT - 30MG IN BP BROUGHT INTO HOSPITAL AND HAS A POD OF 15MG BROUG
  19. MONTELUKAST [Concomitant]
     Active Substance: MONTELUKAST SODIUM
     Dosage: 10MG TABLETS ONE TO BE TAKEN AT NIGHT 28 TABLET
  20. OMEPRAZOLE [Concomitant]
     Active Substance: OMEPRAZOLE
  21. OXYCODONE [Concomitant]
     Active Substance: OXYCODONE
  22. ACETAMINOPHEN [Concomitant]
     Active Substance: ACETAMINOPHEN
  23. ZOPICLONE [Concomitant]
     Active Substance: ZOPICLONE
     Dosage: 7.5MG TABLETS 1 TABLET AT NIGHT 28 TABLET
  24. SENNA [Concomitant]
     Active Substance: SENNA LEAF\SENNOSIDES\SENNOSIDES A AND B
     Dosage: 7.5MG TABLETS TWO TO BE TAKEN AT NIGHT

REACTIONS (2)
  - Muscle twitching [Unknown]
  - Restless legs syndrome [Unknown]
